FAERS Safety Report 21985776 (Version 1)
Quarter: 2023Q1

REPORT INFORMATION
  Report Type: Spontaneous
  Country: US (occurrence: None)
  Receive Date: 20230211
  Receipt Date: 20230211
  Transmission Date: 20230417
  Serious: Yes (Hospitalization, Disabling)
  Sender: FDA-Public Use
  Company Number: None

PATIENT
  Age: 43 Year
  Sex: Female
  Weight: 46.8 kg

DRUGS (1)
  1. CIPROFLOXACIN [Suspect]
     Active Substance: CIPROFLOXACIN
     Indication: Urinary tract infection

REACTIONS (14)
  - Movement disorder [None]
  - Nerve injury [None]
  - Weight decreased [None]
  - Muscle atrophy [None]
  - Depression [None]
  - Tremor [None]
  - Temperature intolerance [None]
  - Alopecia [None]
  - Headache [None]
  - Heart rate increased [None]
  - Quality of life decreased [None]
  - Pain [None]
  - Gastrointestinal disorder [None]
  - Asthenia [None]

NARRATIVE: CASE EVENT DATE: 20211017
